FAERS Safety Report 6082627-7 (Version None)
Quarter: 2009Q1

REPORT INFORMATION
  Report Type: 
  Country: None (occurrence: None)
  Receive Date: 20090202
  Receipt Date: 20070730
  Transmission Date: 20090719
  Serious: Yes (Life-Threatening)
  Sender: FDA-Public Use
  Company Number: 266012

PATIENT
  Age: 59 Year
  Sex: Female
  Weight: 65.8 kg

DRUGS (2)
  1. NOVOLOG [Suspect]
     Indication: TYPE 1 DIABETES MELLITUS
     Dosage: 19 IU, QD 6 IU AM + LUNCH; 7 IU AT DINNER, SUBCUTANEOUS ; 16 IU, 5 IU AM + LUNCH; 6 IU AT DINNER
     Dates: end: 20070729
  2. NOVOLOG [Suspect]
     Indication: TYPE 1 DIABETES MELLITUS
     Dosage: 19 IU, QD 6 IU AM + LUNCH; 7 IU AT DINNER, SUBCUTANEOUS ; 16 IU, 5 IU AM + LUNCH; 6 IU AT DINNER
     Dates: start: 20070730

REACTIONS (1)
  - HYPOGLYCAEMIC UNCONSCIOUSNESS [None]
